FAERS Safety Report 7687859-X (Version None)
Quarter: 2011Q3

REPORT INFORMATION
  Report Type: 
  Country: None (occurrence: None)
  Receive Date: 20110817
  Receipt Date: 20110803
  Transmission Date: 20111222
  Serious: Yes (Other)
  Sender: FDA-Public Use
  Company Number: US-JNJFOC-20110803029

PATIENT
  Sex: Female
  Weight: 53.07 kg

DRUGS (1)
  1. NORGESTIMATE AND ETHINYL ESTRADIOL [Suspect]
     Indication: MENSTRUATION IRREGULAR
     Route: 048
     Dates: start: 20110628

REACTIONS (4)
  - BLOOD URINE PRESENT [None]
  - COAGULOPATHY [None]
  - CEREBROVASCULAR ACCIDENT [None]
  - OFF LABEL USE [None]
